FAERS Safety Report 6197401-0 (Version None)
Quarter: 2009Q2

REPORT INFORMATION
  Report Type: 
  Country: None (occurrence: None)
  Receive Date: 20090521
  Receipt Date: 20090514
  Transmission Date: 20091009
  Serious: Yes (Other)
  Sender: FDA-Public Use
  Company Number: PHHY2009CA17429

PATIENT
  Sex: Male

DRUGS (2)
  1. CLOZARIL [Suspect]
     Indication: SCHIZOPHRENIA
     Dosage: 600 MG/ DAY
     Route: 048
     Dates: start: 19970406
  2. EFFEXOR [Concomitant]
     Dosage: 75 MG/ DAILY

REACTIONS (3)
  - ANTIPSYCHOTIC DRUG LEVEL INCREASED [None]
  - ATRIOVENTRICULAR BLOCK FIRST DEGREE [None]
  - SYNCOPE [None]
